FAERS Safety Report 12423814 (Version 1)
Quarter: 2016Q2

REPORT INFORMATION
  Report Type: Spontaneous
  Country: FR (occurrence: FR)
  Receive Date: 20160601
  Receipt Date: 20160601
  Transmission Date: 20160815
  Serious: Yes (Life-Threatening, Hospitalization)
  Sender: FDA-Public Use
  Company Number: FR-PFIZER INC-2016273621

PATIENT
  Age: 18 Year
  Sex: Female

DRUGS (5)
  1. JANUVIA [Suspect]
     Active Substance: SITAGLIPTIN PHOSPHATE
     Indication: POISONING DELIBERATE
     Dosage: 14 DF, SINGLE
     Route: 048
     Dates: start: 20160418, end: 20160418
  2. PROPRANOLOL [Suspect]
     Active Substance: PROPRANOLOL\PROPRANOLOL HYDROCHLORIDE
     Indication: POISONING DELIBERATE
     Dosage: 30 DF, SINGLE
     Route: 048
     Dates: start: 20160418, end: 20160418
  3. RENITEC /00574902/ [Suspect]
     Active Substance: ENALAPRIL MALEATE
     Indication: POISONING DELIBERATE
     Dosage: 14 DF, SINGLE
     Route: 048
     Dates: start: 20160418, end: 20160418
  4. ALPRAZOLAM. [Suspect]
     Active Substance: ALPRAZOLAM
     Indication: POISONING DELIBERATE
     Dosage: 15 DF, SINGLE
     Route: 048
     Dates: start: 20160418, end: 20160418
  5. ALPRESS [Suspect]
     Active Substance: PRAZOSIN
     Indication: POISONING DELIBERATE
     Dosage: 30 DF, SINGLE
     Dates: start: 20160418, end: 20160418

REACTIONS (5)
  - Atrioventricular block first degree [Recovered/Resolved]
  - Shock [Recovered/Resolved]
  - Intentional overdose [Recovered/Resolved]
  - Cardiogenic shock [Recovered/Resolved]
  - Somnolence [Recovered/Resolved]

NARRATIVE: CASE EVENT DATE: 20160418
